FAERS Safety Report 8476781-7 (Version None)
Quarter: 2012Q2

REPORT INFORMATION
  Report Type: 
  Country: None (occurrence: None)
  Receive Date: 20120628
  Receipt Date: 20120622
  Transmission Date: 20120825
  Serious: Yes (Other)
  Sender: FDA-Public Use
  Company Number: JP-MERCK-1206USA04723

PATIENT
  Age: 60 Year
  Sex: Female

DRUGS (5)
  1. EPIRUBICIN HYDROCHLORIDE [Concomitant]
     Indication: BREAST CANCER
     Route: 065
     Dates: start: 20120319, end: 20120319
  2. ALOXI [Concomitant]
     Route: 065
     Dates: start: 20120319, end: 20120319
  3. FOSAPREPITANT DIMEGLUMINE [Suspect]
     Indication: PROPHYLAXIS OF NAUSEA AND VOMITING
     Route: 041
     Dates: start: 20120319, end: 20120319
  4. CYCLOPHOSPHAMIDE [Concomitant]
     Route: 065
     Dates: start: 20120319, end: 20120319
  5. DECADRON [Concomitant]
     Indication: BREAST CANCER
     Route: 065
     Dates: start: 20120319, end: 20120319

REACTIONS (2)
  - INJECTION SITE PAIN [None]
  - INJECTION SITE PHLEBITIS [None]
